FAERS Safety Report 5066809-9 (Version None)
Quarter: 2006Q3

REPORT INFORMATION
  Report Type: 
  Country: None (occurrence: None)
  Receive Date: 20060801
  Receipt Date: 20060608
  Transmission Date: 20061208
  Serious: Yes (Hospitalization)
  Sender: FDA-Public Use
  Company Number: PHHO2006GB09398

PATIENT
  Sex: Male
  Weight: 60 kg

DRUGS (2)
  1. PREDNISOLONE [Concomitant]
     Indication: RENAL TRANSPLANT
     Dosage: UNK, UNK
     Route: 048
     Dates: start: 20060602
  2. MYFORTIC [Suspect]
     Indication: RENAL TRANSPLANT
     Dosage: 1260 MG / DAY
     Route: 048
     Dates: start: 20060308, end: 20060602

REACTIONS (5)
  - ABDOMINAL PAIN [None]
  - CHOLELITHIASIS [None]
  - CONCOMITANT DISEASE PROGRESSION [None]
  - CYTOMEGALOVIRUS INFECTION [None]
  - PYREXIA [None]
